FAERS Safety Report 6634094-X (Version None)
Quarter: 2010Q1

REPORT INFORMATION
  Report Type: 
  Country: None (occurrence: None)
  Receive Date: 20100315
  Receipt Date: 20100310
  Transmission Date: 20100710
  Serious: Yes (Hospitalization)
  Sender: FDA-Public Use
  Company Number: SG-ASTRAZENECA-2010SE10389

PATIENT
  Age: 61 Year
  Sex: Female
  Weight: 50.6 kg

DRUGS (4)
  1. ATENOLOL [Suspect]
     Indication: HYPERTENSION
     Route: 048
     Dates: start: 19990101
  2. SUNITINIB MALATE [Suspect]
     Indication: HEPATIC NEOPLASM MALIGNANT
     Route: 048
     Dates: start: 20090704, end: 20091113
  3. PROCODIN [Concomitant]
     Indication: COUGH
     Dosage: 10 ML THRICE DAILY WHENEVER NECESSARY
     Dates: start: 20090703
  4. LAMIVUDINE [Concomitant]
     Indication: HEPATITIS B
     Dates: start: 20090704

REACTIONS (1)
  - SUPRAVENTRICULAR EXTRASYSTOLES [None]
